FAERS Safety Report 9015638 (Version 1)
Quarter: 2013Q1

REPORT INFORMATION
  Report Type: Spontaneous
  Country: US (occurrence: None)
  Receive Date: 20130103
  Receipt Date: 20130103
  Transmission Date: 20140127
  Serious: Yes (Other)
  Sender: FDA-Public Use
  Company Number: 2012-22988

PATIENT
  Sex: 0

DRUGS (1)
  1. METFORMIN HYDROCHLORIDE [Suspect]
     Indication: FOETAL EXPOSURE DURING PREGNANCY
     Route: 064

REACTIONS (4)
  - Small for dates baby [None]
  - Foetal exposure during pregnancy [None]
  - Impaired fasting glucose [None]
  - Blood pressure systolic increased [None]
